FAERS Safety Report 15768893 (Version 1)
Quarter: 2018Q4

REPORT INFORMATION
  Report Type: Spontaneous
  Country: US (occurrence: US)
  Receive Date: 20181228
  Receipt Date: 20181228
  Transmission Date: 20190205
  Serious: Yes (Other)
  Sender: FDA-Public Use
  Company Number: US-COLGATE PALMOLIVE COMPANY-20181203016

PATIENT
  Sex: Female

DRUGS (1)
  1. COLGATE OPTIC WHITE STAIN FIGHTER CLEAN MINT [Suspect]
     Active Substance: SODIUM FLUORIDE
     Dosage: UNKNOWN DOSE
     Route: 048
     Dates: start: 20181123, end: 201812

REACTIONS (4)
  - Discomfort [Unknown]
  - Malaise [Unknown]
  - Vomiting [Unknown]
  - Abdominal pain [Unknown]

NARRATIVE: CASE EVENT DATE: 2018
